FAERS Safety Report 23181800 (Version 1)
Quarter: 2023Q4

REPORT INFORMATION
  Report Type: Spontaneous
  Country: PT (occurrence: PT)
  Receive Date: 20231114
  Receipt Date: 20231114
  Transmission Date: 20240110
  Serious: Yes (Death, Other)
  Sender: FDA-Public Use
  Company Number: PT-AMGEN-PRTSP2023200749

PATIENT
  Age: 74 Year
  Sex: Female

DRUGS (1)
  1. BEVACIZUMAB [Suspect]
     Active Substance: BEVACIZUMAB
     Indication: Age-related macular degeneration
     Dosage: UNK

REACTIONS (4)
  - Brain herniation [Fatal]
  - Posterior reversible encephalopathy syndrome [Unknown]
  - Drug effective for unapproved indication [Unknown]
  - Off label use [Unknown]
